FAERS Safety Report 9620306 (Version 1)
Quarter: 2013Q4

REPORT INFORMATION
  Report Type: Spontaneous
  Country: US (occurrence: US)
  Receive Date: 20131014
  Receipt Date: 20131014
  Transmission Date: 20140711
  Serious: No
  Sender: FDA-Public Use
  Company Number: US-ALLERGAN-1300911US

PATIENT
  Age: 79 Year
  Sex: Female

DRUGS (8)
  1. ALPHAGAN [Suspect]
     Indication: GLAUCOMA
     Dosage: 2 GTT, UNK
     Route: 047
  2. LUMIGAN [Concomitant]
     Indication: GLAUCOMA
     Dosage: 2 GTT, UNK
     Route: 047
  3. HYDROCHLOROTHIAZIDE [Concomitant]
     Indication: HYPERTENSION
     Dosage: 25 MG, QD
     Route: 048
  4. FOLIC ACID [Concomitant]
     Indication: SUPPLEMENTATION THERAPY
     Dosage: 1 MG, UNK
     Route: 048
  5. WARFARIN [Concomitant]
     Indication: ANTICOAGULANT THERAPY
     Dosage: 1 N/A, UNK
     Route: 048
  6. WARFARIN [Concomitant]
     Dosage: 1.5 N/A, UNK
     Route: 048
  7. METHOTREXATE [Concomitant]
     Indication: RHEUMATOID ARTHRITIS
     Dosage: 3 N/A, Q WEEK
     Route: 048
  8. VERAPAMIL [Concomitant]
     Indication: HYPERTENSION
     Dosage: 40 MG, QD
     Route: 048

REACTIONS (1)
  - Vision blurred [Recovered/Resolved]
